FAERS Safety Report 15627615 (Version 2)
Quarter: 2018Q4

REPORT INFORMATION
  Report Type: Report from Study
  Country: US (occurrence: US)
  Receive Date: 20181116
  Receipt Date: 20181203
  Transmission Date: 20190205
  Serious: Yes (Other)
  Sender: FDA-Public Use
  Company Number: US-TESARO-2018-TSO1710-US

PATIENT
  Sex: Female

DRUGS (1)
  1. VARUBI [Suspect]
     Active Substance: ROLAPITANT
     Indication: PRODUCT USED FOR UNKNOWN INDICATION
     Dosage: 180 MG, EVERY 2 WEEKS
     Dates: start: 20180502

REACTIONS (8)
  - Blood alkaline phosphatase increased [Unknown]
  - Arthralgia [Unknown]
  - Emphysema [Unknown]
  - Hydroureter [Not Recovered/Not Resolved]
  - Blood sodium decreased [Recovered/Resolved]
  - Blood calcium decreased [Recovered/Resolved]
  - Neutropenia [Unknown]
  - Hydronephrosis [Not Recovered/Not Resolved]

NARRATIVE: CASE EVENT DATE: 20170306
